FAERS Safety Report 4277821-1 (Version None)
Quarter: 2004Q1

REPORT INFORMATION
  Report Type: 
  Country: None (occurrence: None)
  Receive Date: 20040121
  Receipt Date: 20040105
  Transmission Date: 20041129
  Serious: Yes (Hospitalization)
  Sender: FDA-Public Use
  Company Number: A02200400071

PATIENT
  Age: 60 Year
  Sex: Male

DRUGS (4)
  1. XATRAL - (ALFUZOSIN) - TABLET [Suspect]
     Indication: BENIGN PROSTATIC HYPERPLASIA
     Dosage: ORAL
     Route: 048
     Dates: end: 20031114
  2. MALARONE [Suspect]
     Indication: MALARIA PROPHYLAXIS
     Dosage: 350 MG OD ORAL
     Route: 048
     Dates: start: 20031023, end: 20031104
  3. ZYRTEC [Suspect]
     Dosage: 10 MG OD ORAL
     Route: 048
     Dates: start: 20031104, end: 20031107
  4. ACETAMINOPHEN [Suspect]
     Dosage: 500 MG OD ORAL
     Route: 048
     Dates: start: 20031031, end: 20031031

REACTIONS (14)
  - DYSAESTHESIA [None]
  - ENCEPHALITIS VIRAL [None]
  - EOSINOPHILIA [None]
  - FACIAL PALSY [None]
  - FLUSHING [None]
  - HERPES VIRUS INFECTION [None]
  - HYPERHIDROSIS [None]
  - LEUKOENCEPHALOPATHY [None]
  - LYME DISEASE [None]
  - MENINGISM [None]
  - NERVE ROOT LESION [None]
  - PARAESTHESIA [None]
  - RASH MORBILLIFORM [None]
  - SKIN DESQUAMATION [None]
